FAERS Safety Report 18376039 (Version 1)
Quarter: 2020Q4

REPORT INFORMATION
  Report Type: Spontaneous
  Country: US (occurrence: US)
  Receive Date: 20201010
  Receipt Date: 20201010
  Transmission Date: 20210114
  Serious: Yes (Disabling)
  Sender: FDA-Public Use
  Company Number: None

PATIENT
  Age: 69 Year
  Sex: Female
  Weight: 84.15 kg

DRUGS (38)
  1. ARMODAFINIL. [Concomitant]
     Active Substance: ARMODAFINIL
  2. BENICAR [Concomitant]
     Active Substance: OLMESARTAN MEDOXOMIL
  3. CARVEDILOL. [Concomitant]
     Active Substance: CARVEDILOL
  4. FUROSIMIDE [Concomitant]
     Active Substance: FUROSEMIDE
  5. HYDROMORPHONE [Concomitant]
     Active Substance: HYDROMORPHONE
  6. MONTELUKAST [Concomitant]
     Active Substance: MONTELUKAST SODIUM
  7. PROAIR HFA [Concomitant]
     Active Substance: ALBUTEROL SULFATE
  8. TRICOR [Concomitant]
     Active Substance: FENOFIBRATE
  9. VITAMIN B12 [Concomitant]
     Active Substance: CYANOCOBALAMIN
  10. MULTI VITAMIN [Concomitant]
     Active Substance: VITAMINS
  11. PROBIOTIC [Concomitant]
     Active Substance: PROBIOTICS NOS
  12. METFORMIN HYDROCHLORIDE ER [Suspect]
     Active Substance: METFORMIN HYDROCHLORIDE
     Indication: TYPE 2 DIABETES MELLITUS
     Dosage: ?          QUANTITY:2 TABLET(S);?
     Route: 048
  13. TIMOLOL. [Concomitant]
     Active Substance: TIMOLOL
  14. ASPIRIN. [Concomitant]
     Active Substance: ASPIRIN
  15. ALFA LIPOAC ACID [Concomitant]
  16. VITAMIN B6 [Concomitant]
     Active Substance: PYRIDOXINE HYDROCHLORIDE
  17. CARBIDOPA-LEVODOPA [Concomitant]
     Active Substance: CARBIDOPA\LEVODOPA
  18. GABAPENTIN. [Concomitant]
     Active Substance: GABAPENTIN
  19. HUMALOG [Concomitant]
     Active Substance: INSULIN LISPRO
  20. LINZESS [Concomitant]
     Active Substance: LINACLOTIDE
  21. PANCREAZE [Concomitant]
     Active Substance: PANCRELIPASE AMYLASE\PANCRELIPASE LIPASE\PANCRELIPASE PROTEASE
  22. CLONIDINE. [Concomitant]
     Active Substance: CLONIDINE
  23. TOUJEO [Concomitant]
     Active Substance: INSULIN GLARGINE
  24. ULTRAVITE [Concomitant]
  25. VITAMIN B10 [Concomitant]
  26. BACLOFEN. [Concomitant]
     Active Substance: BACLOFEN
  27. METFORMIN [Concomitant]
     Active Substance: METFORMIN HYDROCHLORIDE
  28. STOOL SOFTENER (DOCUSATE) [Concomitant]
     Active Substance: DOCUSATE
  29. CLOPIDOGREL [Concomitant]
     Active Substance: CLOPIDOGREL BISULFATE
  30. DOXAZOSIN MESYLATE. [Concomitant]
     Active Substance: DOXAZOSIN MESYLATE
  31. POTASSIUM CHLORIDE. [Concomitant]
     Active Substance: POTASSIUM CHLORIDE
  32. FENOFIBRATE. [Concomitant]
     Active Substance: FENOFIBRATE
  33. LEVOTHROXINE [Concomitant]
     Active Substance: LEVOTHYROXINE
  34. MAGNESIUM CITRATE. [Concomitant]
     Active Substance: MAGNESIUM CITRATE
  35. C-NALTREXONE, 2.5 MG [Concomitant]
     Active Substance: NALTREXONE
  36. HYDRALAZINE [Concomitant]
     Active Substance: HYDRALAZINE HYDROCHLORIDE
  37. LATANAPROST [Concomitant]
     Active Substance: LATANOPROST
  38. TRIAMCINOLONE [Concomitant]
     Active Substance: TRIAMCINOLONE

REACTIONS (9)
  - Condition aggravated [None]
  - Complex regional pain syndrome [None]
  - Alopecia [None]
  - Product impurity [None]
  - Product contamination [None]
  - Gastric disorder [None]
  - Renal artery stenosis [None]
  - Parkinson^s disease [None]
  - Muscle spasms [None]

NARRATIVE: CASE EVENT DATE: 20191101
